FAERS Safety Report 5745102-2 (Version None)
Quarter: 2008Q2

REPORT INFORMATION
  Report Type: 
  Country: None (occurrence: None)
  Receive Date: 20080521
  Receipt Date: 20080513
  Transmission Date: 20081010
  Serious: Yes (Other)
  Sender: FDA-Public Use
  Company Number: PHHY2008BE07820

PATIENT
  Sex: Male

DRUGS (2)
  1. ZOLEDRONIC ACID [Suspect]
     Dosage: UNK, ONCE/SINGLE
     Dates: start: 20080415
  2. DAFALGAN [Concomitant]
     Dates: start: 20080415

REACTIONS (5)
  - ARTHRALGIA [None]
  - HYPOTENSION [None]
  - MYALGIA [None]
  - PYREXIA [None]
  - VOMITING [None]
